FAERS Safety Report 10591331 (Version 1)
Quarter: 2014Q4

REPORT INFORMATION
  Report Type: Spontaneous
  Country: DE (occurrence: DE)
  Receive Date: 20141118
  Receipt Date: 20141118
  Transmission Date: 20150529
  Serious: Yes (Congenital Anomaly, Other)
  Sender: FDA-Public Use
  Company Number: DE-TEVA-521695GER

PATIENT
  Age: 1 Day
  Sex: Male

DRUGS (1)
  1. PAROXETIN [Suspect]
     Active Substance: PAROXETINE HYDROCHLORIDE
     Indication: DEPRESSION
     Route: 064
     Dates: start: 20121115, end: 20130822

REACTIONS (6)
  - Limb reduction defect [Not Recovered/Not Resolved]
  - Atrial septal defect [Unknown]
  - Brachydactyly [Not Recovered/Not Resolved]
  - Exposure during pregnancy [Unknown]
  - Oculoauriculovertebral dysplasia [Not Recovered/Not Resolved]
  - Hypoglycaemia neonatal [Recovered/Resolved]

NARRATIVE: CASE EVENT DATE: 20130822
